FAERS Safety Report 6501113-0 (Version None)
Quarter: 2009Q4

REPORT INFORMATION
  Report Type: 
  Country: None (occurrence: None)
  Receive Date: 20091216
  Receipt Date: 20090723
  Transmission Date: 20100525
  Serious: No
  Sender: FDA-Public Use
  Company Number: A0798430A

PATIENT
  Age: 56 Year
  Sex: Male

DRUGS (3)
  1. COMMIT [Suspect]
     Dates: end: 20090722
  2. METHOTREXATE [Concomitant]
  3. FOLIC ACID [Concomitant]

REACTIONS (4)
  - EXPIRED DRUG ADMINISTERED [None]
  - NICOTINE DEPENDENCE [None]
  - ORAL DISCOMFORT [None]
  - STOMATITIS [None]
